FAERS Safety Report 9191511 (Version 1)
Quarter: 2013Q1

REPORT INFORMATION
  Report Type: Spontaneous
  Country: BE (occurrence: BE)
  Receive Date: 20130326
  Receipt Date: 20130326
  Transmission Date: 20140127
  Serious: Yes (Other)
  Sender: FDA-Public Use
  Company Number: BE-PFIZER INC-2013095425

PATIENT
  Age: 63 Year
  Sex: Male

DRUGS (5)
  1. CHAMPIX [Suspect]
     Indication: SMOKING CESSATION THERAPY
     Dosage: 0.5 MG, 1X/DAY
     Route: 048
  2. CHAMPIX [Suspect]
     Dosage: 1 MG, 1X/DAY
     Route: 048
  3. D-CURE [Concomitant]
  4. NEOTIGASON [Concomitant]
  5. HYDROCHLOROTHIAZIDE\LISINOPRIL [Concomitant]

REACTIONS (9)
  - Cognitive disorder [Unknown]
  - Amnesia [Unknown]
  - Disturbance in attention [Unknown]
  - Personality change [Unknown]
  - Aggression [Unknown]
  - Nausea [Unknown]
  - Headache [Unknown]
  - Photophobia [Unknown]
  - Thirst [Unknown]
